FAERS Safety Report 5590082-6 (Version None)
Quarter: 2008Q1

REPORT INFORMATION
  Report Type: 
  Country: None (occurrence: None)
  Receive Date: 20080114
  Receipt Date: 20070223
  Transmission Date: 20080703
  Serious: No
  Sender: FDA-Public Use
  Company Number: US-ABBOTT-07P-163-0360619-00

PATIENT
  Sex: Male
  Weight: 29.51 kg

DRUGS (2)
  1. OMNICEF [Suspect]
     Indication: SINUSITIS
     Route: 048
     Dates: start: 20070215, end: 20070218
  2. FLUTICASONE PROPIONATE [Concomitant]
     Route: 045
     Dates: start: 20070214

REACTIONS (4)
  - ABDOMINAL PAIN UPPER [None]
  - DIARRHOEA [None]
  - GASTROINTESTINAL INFECTION [None]
  - URTICARIA [None]
